FAERS Safety Report 23636450 (Version 1)
Quarter: 2024Q1

REPORT INFORMATION
  Report Type: Spontaneous
  Country: US (occurrence: None)
  Receive Date: 20240314
  Receipt Date: 20240314
  Transmission Date: 20240410
  Serious: Yes (Other)
  Sender: FDA-Public Use
  Company Number: None

PATIENT
  Age: 65 Year
  Sex: Male
  Weight: 91.35 kg

DRUGS (23)
  1. AZITHROMYCIN [Suspect]
     Active Substance: AZITHROMYCIN
     Indication: Sinusitis
     Dosage: OTHER QUANTITY : 12 TABLET(S);?FREQUENCY : DAILY;?
     Route: 048
  2. AZITHROMYCIN [Suspect]
     Active Substance: AZITHROMYCIN
     Indication: Pneumonia
  3. AZITHROMYCIN [Suspect]
     Active Substance: AZITHROMYCIN
     Indication: Asthma
  4. MONTELUKAST [Concomitant]
     Active Substance: MONTELUKAST SODIUM
  5. TELMISARTAN [Concomitant]
     Active Substance: TELMISARTAN
  6. ALLOPURINOL [Concomitant]
     Active Substance: ALLOPURINOL
  7. PIROXICAM [Concomitant]
     Active Substance: PIROXICAM
  8. FUROSEMIDE [Concomitant]
     Active Substance: FUROSEMIDE
  9. ROSUVASTATIN [Concomitant]
     Active Substance: ROSUVASTATIN
  10. ALBUTEROL [Concomitant]
     Active Substance: ALBUTEROL
  11. Symbicort 80/120 [Concomitant]
  12. SPIRIVA [Concomitant]
     Active Substance: TIOTROPIUM BROMIDE MONOHYDRATE
  13. OMEPRAZOLE [Concomitant]
     Active Substance: OMEPRAZOLE
  14. FAMOTIDINE [Concomitant]
     Active Substance: FAMOTIDINE
  15. Pseudoephedrine-SR [Concomitant]
  16. Guaifenisen [Concomitant]
  17. SENNA LAXATIVE [Concomitant]
     Active Substance: SENNOSIDES
  18. DOCUSATE SODIUM [Concomitant]
     Active Substance: DOCUSATE SODIUM
  19. CHONDROITIN SULFATE (BOVINE)\GLUCOSAMINE SULFATE [Concomitant]
     Active Substance: CHONDROITIN SULFATE (BOVINE)\GLUCOSAMINE SULFATE
  20. VITAMIN D3 [Concomitant]
     Active Substance: CHOLECALCIFEROL
  21. MIRALAX [Concomitant]
     Active Substance: POLYETHYLENE GLYCOL 3350
  22. NASONEX [Concomitant]
     Active Substance: MOMETASONE FUROATE
  23. ASPIRIN [Concomitant]
     Active Substance: ASPIRIN

REACTIONS (3)
  - Angina pectoris [None]
  - Therapy cessation [None]
  - Electrocardiogram normal [None]

NARRATIVE: CASE EVENT DATE: 20240311
